FAERS Safety Report 18346038 (Version 1)
Quarter: 2020Q4

REPORT INFORMATION
  Report Type: Spontaneous
  Country: PL (occurrence: PL)
  Receive Date: 20201005
  Receipt Date: 20201005
  Transmission Date: 20210114
  Serious: Yes (Life-Threatening, Hospitalization, Disabling)
  Sender: FDA-Public Use
  Company Number: PL-ROCHE-2688628

PATIENT
  Age: 63 Year
  Sex: Female
  Weight: 81 kg

DRUGS (2)
  1. MABTHERA [Suspect]
     Active Substance: RITUXIMAB
     Indication: PRODUCT USED FOR UNKNOWN INDICATION
     Dosage: MOST RECENT DOSE OF RITUXIMAB WAS RECEIVED ON 09/MAR/2018.
     Route: 041
     Dates: start: 20160311
  2. BENDAMUSTINE [Concomitant]
     Active Substance: BENDAMUSTINE

REACTIONS (4)
  - Progressive multifocal leukoencephalopathy [Unknown]
  - Aphasia [Unknown]
  - Ischaemic stroke [Unknown]
  - Monoparesis [Unknown]

NARRATIVE: CASE EVENT DATE: 201802
